FAERS Safety Report 18932891 (Version 1)
Quarter: 2021Q1

REPORT INFORMATION
  Report Type: Spontaneous
  Country: US (occurrence: US)
  Receive Date: 20210223
  Receipt Date: 20210223
  Transmission Date: 20210420
  Serious: Yes (Hospitalization)
  Sender: FDA-Public Use
  Company Number: None

PATIENT
  Sex: Female

DRUGS (1)
  1. DEFERASIROX 360 MG XIROMED [Suspect]
     Active Substance: DEFERASIROX
     Indication: COLON CANCER
     Route: 048
     Dates: start: 201510

REACTIONS (3)
  - Drug intolerance [None]
  - Intentional dose omission [None]
  - Sickle cell anaemia with crisis [None]
